FAERS Safety Report 12145569 (Version 1)
Quarter: 2016Q1

REPORT INFORMATION
  Report Type: Spontaneous
  Country: US (occurrence: US)
  Receive Date: 20160304
  Receipt Date: 20160304
  Transmission Date: 20160526
  Serious: Yes (Hospitalization)
  Sender: FDA-Public Use
  Company Number: US-ABBVIE-15P-163-1496422-00

PATIENT
  Age: 39 Year
  Sex: Male
  Weight: 108.96 kg

DRUGS (16)
  1. AMBIEN [Concomitant]
     Active Substance: ZOLPIDEM TARTRATE
     Indication: INSOMNIA
     Dosage: QHS
     Route: 048
     Dates: start: 2010
  2. FIBER [Concomitant]
     Active Substance: PSYLLIUM HUSK
     Indication: BLOOD CHOLESTEROL
     Route: 065
     Dates: start: 2014
  3. VITAMIN C [Concomitant]
     Active Substance: ASCORBIC ACID
     Indication: PRODUCT USED FOR UNKNOWN INDICATION
     Route: 048
  4. ANDROGEL [Suspect]
     Active Substance: TESTOSTERONE
     Indication: ANDROGEN REPLACEMENT THERAPY
     Dosage: PACKET
     Route: 061
     Dates: start: 200812, end: 20090316
  5. ANDROGEL [Suspect]
     Active Substance: TESTOSTERONE
     Dosage: 3 PUMPS
     Route: 062
     Dates: start: 2010
  6. ZYRTEC [Concomitant]
     Active Substance: CETIRIZINE HYDROCHLORIDE
     Indication: HYPERSENSITIVITY
     Dosage: 5MG/120 MG ONE TABLET Q DAY
     Route: 048
     Dates: start: 2012
  7. VITAMIN D [Concomitant]
     Active Substance: CHOLECALCIFEROL
     Indication: VITAMIN D DEFICIENCY
     Dosage: 50,000 UNITS
     Route: 065
     Dates: start: 2014
  8. BUDESONIDE. [Concomitant]
     Active Substance: BUDESONIDE
     Indication: ASTHMA
     Route: 065
     Dates: start: 200907, end: 200911
  9. ATORVASTATIN [Concomitant]
     Active Substance: ATORVASTATIN
     Indication: BLOOD CHOLESTEROL
     Dosage: AT BEDTIME
     Route: 048
     Dates: start: 201504, end: 201507
  10. OMEGA 3 [Concomitant]
     Active Substance: OMEGA-3 FATTY ACIDS
     Indication: PRODUCT USED FOR UNKNOWN INDICATION
     Route: 048
  11. FLAXSEED [Concomitant]
     Active Substance: FLAX SEED
     Indication: PROPHYLAXIS
     Route: 048
     Dates: start: 2010
  12. ZOLPIDEM [Concomitant]
     Active Substance: ZOLPIDEM\ZOLPIDEM TARTRATE
     Indication: INSOMNIA
     Route: 065
     Dates: start: 200812, end: 201408
  13. ANDROGEL [Suspect]
     Active Substance: TESTOSTERONE
     Dosage: 3 PUMPS
     Route: 061
     Dates: start: 200903
  14. ANDROGEL [Suspect]
     Active Substance: TESTOSTERONE
     Dosage: 2 PUMPS 4 WEEKS ON AND ONE WEEK OFF
     Route: 062
     Dates: start: 2011, end: 201504
  15. LIPITOR [Concomitant]
     Active Substance: ATORVASTATIN CALCIUM
     Indication: BLOOD CHOLESTEROL
     Route: 048
     Dates: start: 201505
  16. ANUSOL-HC [Concomitant]
     Indication: HAEMORRHOIDS
     Route: 054

REACTIONS (13)
  - Thrombophlebitis superficial [Unknown]
  - Limb discomfort [Unknown]
  - Vitamin D deficiency [Unknown]
  - Peripheral swelling [Unknown]
  - Thrombophlebitis superficial [Recovered/Resolved]
  - Hypercoagulation [Unknown]
  - Deep vein thrombosis [Unknown]
  - Pulmonary embolism [Recovered/Resolved]
  - Dermatitis [Recovered/Resolved]
  - Irritable bowel syndrome [Unknown]
  - Phlebitis superficial [Unknown]
  - Deep vein thrombosis [Recovered/Resolved]
  - Abdominal pain [Unknown]

NARRATIVE: CASE EVENT DATE: 20090203
